FAERS Safety Report 19808062 (Version 2)
Quarter: 2021Q3

REPORT INFORMATION
  Report Type: Spontaneous
  Country: US (occurrence: US)
  Receive Date: 20210908
  Receipt Date: 20210908
  Transmission Date: 20211014
  Serious: Yes (Hospitalization)
  Sender: FDA-Public Use
  Company Number: US-CELGENEUS-USA-20210901052

PATIENT
  Age: 83 Year
  Sex: Male
  Weight: 68.1 kg

DRUGS (1)
  1. POMALYST [Suspect]
     Active Substance: POMALIDOMIDE
     Indication: PLASMA CELL MYELOMA
     Dosage: 4 MILLIGRAM
     Route: 048
     Dates: start: 20210528

REACTIONS (4)
  - Haemoglobin decreased [Unknown]
  - Influenza [Unknown]
  - Platelet count abnormal [Unknown]
  - Blood urine present [Unknown]

NARRATIVE: CASE EVENT DATE: 20210826
